FAERS Safety Report 6256588-1 (Version None)
Quarter: 2009Q3

REPORT INFORMATION
  Report Type: 
  Country: None (occurrence: None)
  Receive Date: 20090706
  Receipt Date: 20090624
  Transmission Date: 20100115
  Serious: No
  Sender: FDA-Public Use
  Company Number: US-BAYER-200924683NA

PATIENT
  Age: 42 Year
  Sex: Female
  Weight: 102 kg

DRUGS (1)
  1. MIRENA [Suspect]
     Indication: CONTRACEPTION
     Route: 015
     Dates: start: 20070831, end: 20090625

REACTIONS (8)
  - ABDOMINAL PAIN [None]
  - AMENORRHOEA [None]
  - COUGH [None]
  - CYSTITIS [None]
  - INFLUENZA LIKE ILLNESS [None]
  - INTRA-UTERINE CONTRACEPTIVE DEVICE EXPELLED [None]
  - MALAISE [None]
  - VAGINAL HAEMORRHAGE [None]
